FAERS Safety Report 22211437 (Version 3)
Quarter: 2024Q2

REPORT INFORMATION
  Report Type: Spontaneous
  Country: US (occurrence: US)
  Receive Date: 20230414
  Receipt Date: 20240523
  Transmission Date: 20240715
  Serious: Yes (Other)
  Sender: FDA-Public Use
  Company Number: US-002147023-NVSC2023US083240

PATIENT
  Age: 59 Year
  Sex: Female
  Weight: 61 kg

DRUGS (11)
  1. AZITHROMYCIN [Suspect]
     Active Substance: AZITHROMYCIN
     Indication: Sputum culture positive
     Dosage: 500 MG, QD
     Route: 065
     Dates: start: 202201
  2. AZITHROMYCIN [Suspect]
     Active Substance: AZITHROMYCIN
     Dosage: UNK, TIW
     Route: 065
     Dates: start: 202205
  3. AZITHROMYCIN [Suspect]
     Active Substance: AZITHROMYCIN
     Dosage: UNK, QD
     Route: 065
     Dates: start: 202210
  4. CLOFAZIMINE [Suspect]
     Active Substance: CLOFAZIMINE
     Indication: Product used for unknown indication
     Dosage: 50 MG, QD
     Route: 065
  5. RIFAMPIN [Suspect]
     Active Substance: RIFAMPIN
     Indication: Product used for unknown indication
     Dosage: 300 MG, QD
     Route: 065
     Dates: start: 202201
  6. RIFAMPIN [Suspect]
     Active Substance: RIFAMPIN
     Dosage: UNK UNK, TIW
     Route: 065
     Dates: start: 202205
  7. RIFAMPIN [Suspect]
     Active Substance: RIFAMPIN
     Dosage: UNK, QD
     Route: 065
     Dates: start: 202210
  8. AMIKACIN [Suspect]
     Active Substance: AMIKACIN
     Indication: Product used for unknown indication
     Dosage: UNK
     Route: 055
  9. ETHAMBUTOL [Suspect]
     Active Substance: ETHAMBUTOL HYDROCHLORIDE
     Indication: Sputum culture positive
     Dosage: 800 MG, QD
     Route: 065
     Dates: start: 202201
  10. ETHAMBUTOL [Suspect]
     Active Substance: ETHAMBUTOL HYDROCHLORIDE
     Dosage: UNK, TIW
     Route: 065
     Dates: start: 202205
  11. ETHAMBUTOL [Suspect]
     Active Substance: ETHAMBUTOL HYDROCHLORIDE
     Dosage: UNK, QD
     Route: 065
     Dates: start: 202210

REACTIONS (6)
  - Mycobacterium avium complex infection [Unknown]
  - Nodule [Unknown]
  - Granuloma [Unknown]
  - Chronic obstructive pulmonary disease [Unknown]
  - Drug intolerance [Unknown]
  - Treatment failure [Unknown]

NARRATIVE: CASE EVENT DATE: 20180101
